FAERS Safety Report 21182363 (Version 1)
Quarter: 2022Q3

REPORT INFORMATION
  Report Type: Spontaneous
  Country: CN (occurrence: CN)
  Receive Date: 20220807
  Receipt Date: 20220807
  Transmission Date: 20221027
  Serious: Yes (Other)
  Sender: FDA-Public Use
  Company Number: CN-BAUSCH-BL-2022-019377

PATIENT
  Sex: Male

DRUGS (2)
  1. DEXAMETHASONE [Suspect]
     Active Substance: DEXAMETHASONE
     Indication: PASH syndrome
     Dosage: 0.75-3 MG/D
     Route: 048
     Dates: start: 2009
  2. DEXAMETHASONE [Suspect]
     Active Substance: DEXAMETHASONE
     Indication: Spondylitis

REACTIONS (5)
  - Duodenal ulcer [Unknown]
  - General physical health deterioration [Unknown]
  - Rash [Recovered/Resolved]
  - Symptom recurrence [Recovered/Resolved]
  - Weight increased [Unknown]
